FAERS Safety Report 8386360-8 (Version None)
Quarter: 2012Q2

REPORT INFORMATION
  Report Type: 
  Country: None (occurrence: None)
  Receive Date: 20120525
  Receipt Date: 20120522
  Transmission Date: 20120825
  Serious: Yes (Other)
  Sender: FDA-Public Use
  Company Number: US-CELGENEUS-163-21880-12033082

PATIENT
  Sex: Female
  Weight: 75.137 kg

DRUGS (4)
  1. ZOMETA [Concomitant]
     Route: 065
  2. REVLIMID [Suspect]
     Indication: MULTIPLE MYELOMA
     Dosage: 15 MILLIGRAM
     Route: 048
     Dates: start: 20110406
  3. REVLIMID [Suspect]
     Dosage: 15 MILLIGRAM
     Route: 048
     Dates: start: 20120305
  4. VICODIN [Concomitant]
     Indication: PAIN
     Route: 065

REACTIONS (3)
  - MULTIPLE MYELOMA [None]
  - PATHOLOGICAL FRACTURE [None]
  - OSTEOLYSIS [None]
